FAERS Safety Report 6218957-5 (Version None)
Quarter: 2009Q2

REPORT INFORMATION
  Report Type: 
  Country: None (occurrence: None)
  Receive Date: 20090608
  Receipt Date: 20090527
  Transmission Date: 20091009
  Serious: Yes (Hospitalization)
  Sender: FDA-Public Use
  Company Number: PHHY2009MX20111

PATIENT
  Age: 61 Year
  Sex: Female

DRUGS (1)
  1. DIOVAN HCT [Suspect]
     Indication: HYPERTENSION
     Dosage: 1 DF, QD
     Route: 048
     Dates: start: 20060801, end: 20090415

REACTIONS (3)
  - ANGINA UNSTABLE [None]
  - CARDIAC PACEMAKER INSERTION [None]
  - OEDEMA PERIPHERAL [None]
